FAERS Safety Report 8167084-9 (Version None)
Quarter: 2012Q1

REPORT INFORMATION
  Report Type: 
  Country: None (occurrence: None)
  Receive Date: 20120103
  Receipt Date: 20111031
  Transmission Date: 20120608
  Serious: No
  Sender: FDA-Public Use
  Company Number: AE-2011-002305

PATIENT
  Age: 54 Year
  Sex: Male
  Weight: 86.1834 kg

DRUGS (4)
  1. ACETAMINOPHEN [Concomitant]
  2. PEGASYS [Concomitant]
  3. INCIVEK [Suspect]
     Dosage: 2250 MG (750 MG, 1 IN 8 HR), ORAL
     Route: 048
     Dates: start: 20110826
  4. RIBAVIRIN [Concomitant]

REACTIONS (9)
  - HEADACHE [None]
  - DYSPNOEA [None]
  - BRADYPHRENIA [None]
  - INSOMNIA [None]
  - INJECTION SITE REACTION [None]
  - HAEMOGLOBIN DECREASED [None]
  - ANORECTAL DISCOMFORT [None]
  - FATIGUE [None]
  - RASH PRURITIC [None]
